FAERS Safety Report 6869507-1 (Version None)
Quarter: 2010Q3

REPORT INFORMATION
  Report Type: 
  Country: None (occurrence: None)
  Receive Date: 20100722
  Receipt Date: 20080805
  Transmission Date: 20110219
  Serious: No
  Sender: FDA-Public Use
  Company Number: US-PFIZER INC-2008065732

PATIENT
  Sex: Female
  Weight: 66.818 kg

DRUGS (4)
  1. CHANTIX [Suspect]
     Indication: SMOKING CESSATION THERAPY
     Dates: start: 20080701
  2. MOTRIN [Concomitant]
  3. ALLEGRA [Concomitant]
  4. NASONEX [Concomitant]

REACTIONS (5)
  - ABDOMINAL PAIN [None]
  - HUNGER [None]
  - INCREASED APPETITE [None]
  - NIGHTMARE [None]
  - WEIGHT INCREASED [None]
